FAERS Safety Report 23967044 (Version 3)
Quarter: 2025Q2

REPORT INFORMATION
  Report Type: Spontaneous
  Country: IL (occurrence: IL)
  Receive Date: 20240612
  Receipt Date: 20250522
  Transmission Date: 20250716
  Serious: Yes (Hospitalization, Other)
  Sender: BIOGEN
  Company Number: IL-BIOGEN-2024BI01268683

PATIENT
  Age: 0 Year
  Sex: Male

DRUGS (2)
  1. TYSABRI [Suspect]
     Active Substance: NATALIZUMAB
     Indication: Maternal exposure timing unspecified
     Route: 050
     Dates: start: 20200423
  2. Similac NeoSure [Concomitant]
     Indication: Infant nutritional formula
     Route: 050

REACTIONS (7)
  - Premature baby [Recovered/Resolved]
  - Neonatal respiratory distress syndrome [Unknown]
  - Bronchopulmonary dysplasia [Unknown]
  - Cerebral haemorrhage neonatal [Unknown]
  - Retinopathy of prematurity [Unknown]
  - Hypertonia [Unknown]
  - Foetal exposure during pregnancy [Recovered/Resolved]

NARRATIVE: CASE EVENT DATE: 20240429
